FAERS Safety Report 8275947-9 (Version None)
Quarter: 2012Q2

REPORT INFORMATION
  Report Type: 
  Country: None (occurrence: None)
  Receive Date: 20120412
  Receipt Date: 20120406
  Transmission Date: 20120825
  Serious: No
  Sender: FDA-Public Use
  Company Number: US-PFIZER INC-2012073841

PATIENT
  Sex: Female
  Weight: 81.633 kg

DRUGS (2)
  1. EFFEXOR XR [Suspect]
     Indication: MAJOR DEPRESSION
     Dosage: 375 MG PER DAY
     Dates: start: 20100101
  2. KLONOPIN [Concomitant]
     Indication: ANXIETY
     Dosage: 1 MG, 1X/DAY

REACTIONS (1)
  - DRUG INEFFECTIVE [None]
